FAERS Safety Report 8924071 (Version 1)
Quarter: 2012Q4

REPORT INFORMATION
  Report Type: 
  Country: NL (occurrence: NL)
  Receive Date: 20121126
  Receipt Date: 20121126
  Transmission Date: 20130627
  Serious: Yes (Life-Threatening)
  Sender: FDA-Public Use
  Company Number: NL-TEVA-370448ISR

PATIENT
  Age: 53 Year
  Sex: Female
  Weight: 64 kg

DRUGS (8)
  1. METFORMINE TABLET 1000MG [Suspect]
     Indication: DIABETES MELLITUS
     Route: 048
     Dates: end: 20121017
  2. DOMPERIDON ZETPIL 60MG [Suspect]
     Indication: VOMITING
     Route: 054
     Dates: start: 20121015, end: 20121017
  3. GLICLAZIDE TABLET MGA 80MG [Concomitant]
     Indication: DIABETES MELLITUS
     Route: 048
  4. HYDROCHLOORTHIAZIDE TABLET 12,5MG [Concomitant]
     Indication: HYPERTENSION
     Route: 048
     Dates: end: 20121017
  5. IRBESARTAN TABLET 150MG [Concomitant]
     Indication: HYPERTENSION
     Route: 048
  6. SIMVASTATINE TABLET 40MG [Concomitant]
     Indication: HYPERCHOLESTEROLAEMIA
     Route: 048
  7. LANSOPRAZOL CAPSULE MGA 30MG [Concomitant]
     Indication: DYSPEPSIA
     Route: 048
  8. PARACETAMOL TABLET  500MG [Concomitant]
     Indication: PAIN
     Route: 048

REACTIONS (4)
  - Lactic acidosis [Unknown]
  - Renal failure [Unknown]
  - Gastroenteritis [None]
  - Dialysis [None]
